FAERS Safety Report 22868913 (Version 2)
Quarter: 2023Q4

REPORT INFORMATION
  Report Type: Spontaneous
  Country: US (occurrence: US)
  Receive Date: 20230825
  Receipt Date: 20231101
  Transmission Date: 20240110
  Serious: Yes (Death, Other)
  Sender: FDA-Public Use
  Company Number: US-PFIZER INC-PV202300137981

PATIENT
  Age: 87 Year
  Sex: Male
  Weight: 50 kg

DRUGS (2)
  1. TALZENNA [Suspect]
     Active Substance: TALAZOPARIB TOSYLATE
     Indication: Prostate cancer metastatic
     Dosage: 0.25 MG, DAILY
     Route: 048
  2. TALZENNA [Suspect]
     Active Substance: TALAZOPARIB TOSYLATE
     Indication: Metastases to bone
     Dosage: 0.5 MG, DAILY
     Route: 048

REACTIONS (3)
  - Death [Fatal]
  - Asthenia [Unknown]
  - General physical health deterioration [Unknown]
